FAERS Safety Report 8279539-7 (Version None)
Quarter: 2012Q2

REPORT INFORMATION
  Report Type: 
  Country: None (occurrence: None)
  Receive Date: 20120412
  Receipt Date: 20111017
  Transmission Date: 20120825
  Serious: Yes (Hospitalization)
  Sender: FDA-Public Use
  Company Number: US-ASTRAZENECA-2011SE58845

PATIENT
  Age: 60 Year
  Sex: Female
  Weight: 72.6 kg

DRUGS (24)
  1. NEXIUM [Suspect]
     Route: 048
  2. LISINOPRIL [Concomitant]
     Indication: HYPERTENSION
     Route: 048
  3. CALCIUM CARBONATE [Concomitant]
  4. PREVASTATIN NA [Concomitant]
     Indication: BLOOD CHOLESTEROL INCREASED
     Route: 048
  5. SINGULAIR [Concomitant]
     Indication: ASTHMA
     Route: 048
  6. NEXIUM [Suspect]
     Route: 048
     Dates: start: 20060101
  7. NEXIUM [Suspect]
     Route: 048
     Dates: start: 20060101
  8. VONIVA [Concomitant]
     Indication: OSTEOPOROSIS
  9. PROVENTIL-HFA [Concomitant]
     Indication: ASTHMA
     Route: 055
  10. ASPIRIN [Concomitant]
     Dosage: HS
  11. MULTI-VITAMINS [Concomitant]
  12. MUSENEX [Concomitant]
     Indication: NASAL CONGESTION
  13. AMLODIPINE BESYLATE [Concomitant]
     Indication: HYPERTENSION
     Route: 048
  14. NEXIUM [Suspect]
     Route: 048
  15. NEXIUM [Suspect]
     Indication: GASTROOESOPHAGEAL REFLUX DISEASE
     Route: 048
  16. VITAMIN-MINERAL COMPOUND TAB [Concomitant]
     Indication: EYE DISORDER
  17. VESICARE [Concomitant]
     Indication: POLLAKIURIA
     Route: 048
  18. MG OXIDE [Concomitant]
     Indication: CARDIAC DISORDER
     Route: 048
  19. NEXIUM [Suspect]
     Route: 048
  20. METFORMIN HCL [Concomitant]
     Indication: DIABETES MELLITUS
     Route: 048
  21. JANUVIA [Concomitant]
     Indication: DIABETES MELLITUS
     Route: 048
  22. ADVAIR DISKUS 100/50 [Concomitant]
     Indication: ASTHMA
     Dosage: 250 50 BID
     Route: 055
  23. METOCLOPRAMIDE [Concomitant]
     Indication: GASTROOESOPHAGEAL REFLUX DISEASE
     Route: 048
  24. LOSARTAN K [Concomitant]
     Indication: HYPERTENSION
     Route: 048

REACTIONS (3)
  - BLOOD SODIUM DECREASED [None]
  - ADVERSE EVENT [None]
  - INAPPROPRIATE SCHEDULE OF DRUG ADMINISTRATION [None]
